FAERS Safety Report 9870130 (Version 1)
Quarter: 2014Q1

REPORT INFORMATION
  Report Type: Spontaneous
  Country: JP (occurrence: None)
  Receive Date: 20140131
  Receipt Date: 20140131
  Transmission Date: 20141002
  Serious: Yes (Other)
  Sender: FDA-Public Use
  Company Number: ADR-2011-10275

PATIENT
  Age: 25 Year
  Sex: Male

DRUGS (1)
  1. GABALON INTRATHECAL [Suspect]
     Indication: MUSCLE SPASTICITY
     Dosage: UNK MCG, DAILY, INTRATH
     Route: 037

REACTIONS (3)
  - Muscle spasticity [None]
  - Condition aggravated [None]
  - Device dislocation [None]
